FAERS Safety Report 25009109 (Version 1)
Quarter: 2025Q1

REPORT INFORMATION
  Report Type: Spontaneous
  Country: US (occurrence: US)
  Receive Date: 20250225
  Receipt Date: 20250225
  Transmission Date: 20250409
  Serious: Yes (Other)
  Sender: PFIZER
  Company Number: US-PFIZER INC-202500041561

PATIENT
  Age: 68 Year
  Sex: Male

DRUGS (1)
  1. MEKTOVI [Suspect]
     Active Substance: BINIMETINIB
     Dosage: 15MG TAKE 2 TABLETS THREE TIMES A DAY

REACTIONS (4)
  - Neoplasm malignant [Unknown]
  - Arthropathy [Unknown]
  - Gait disturbance [Unknown]
  - Off label use [Unknown]
